FAERS Safety Report 4326128-2 (Version None)
Quarter: 2004Q1

REPORT INFORMATION
  Report Type: 
  Country: None (occurrence: None)
  Receive Date: 20040329
  Receipt Date: 20040302
  Transmission Date: 20041129
  Serious: Yes (Death, Hospitalization, Other)
  Sender: FDA-Public Use
  Company Number: IT-BRISTOL-MYERS SQUIBB COMPANY-12523528

PATIENT
  Age: 70 Year
  Sex: Male

DRUGS (10)
  1. COUMADIN [Suspect]
     Indication: ATRIAL FIBRILLATION
     Dosage: OCT-2002, REDUCED TEMPORARILY TO 3.75MG/DAY AFTER RIGHT ELBOW HEMORRHAGE.
     Route: 048
     Dates: start: 20010201, end: 20031231
  2. COUMADIN [Suspect]
     Indication: ATRIAL FLUTTER
     Dosage: OCT-2002, REDUCED TEMPORARILY TO 3.75MG/DAY AFTER RIGHT ELBOW HEMORRHAGE.
     Route: 048
     Dates: start: 20010201, end: 20031231
  3. ASPIRIN [Concomitant]
     Indication: ATRIAL FIBRILLATION
     Dates: start: 20000901
  4. ASPIRIN [Concomitant]
     Indication: HEART VALVE INSUFFICIENCY
     Dates: start: 20000901
  5. PROPAFENONE HCL [Concomitant]
     Indication: ATRIAL FIBRILLATION
  6. PROPAFENONE HCL [Concomitant]
     Indication: HEART VALVE INSUFFICIENCY
  7. AMIODARONE HCL [Concomitant]
     Dates: start: 20010201
  8. LOSARTAN [Concomitant]
     Indication: BLOOD PRESSURE
     Dates: start: 20010201, end: 20020201
  9. METOPROLOL [Concomitant]
     Dates: start: 20010201
  10. ZOFENOPRIL [Concomitant]
     Indication: BLOOD PRESSURE INADEQUATELY CONTROLLED
     Dates: start: 20020201

REACTIONS (7)
  - BLOOD PRESSURE INCREASED [None]
  - CEREBRAL HAEMORRHAGE [None]
  - COMA [None]
  - EMOTIONAL DISTRESS [None]
  - HAEMORRHAGIC STROKE [None]
  - ROAD TRAFFIC ACCIDENT [None]
  - TRAUMATIC HAEMORRHAGE [None]
